FAERS Safety Report 12979810 (Version 2)
Quarter: 2016Q4

REPORT INFORMATION
  Report Type: Spontaneous
  Country: US (occurrence: US)
  Receive Date: 20161128
  Receipt Date: 20161215
  Transmission Date: 20170207
  Serious: No
  Sender: FDA-Public Use
  Company Number: US-JEROME STEVENS PHARMACEUTICALS, INC.-1060115

PATIENT
  Sex: Female

DRUGS (6)
  1. OMEGA 3 (690 MG) [Concomitant]
  2. MAGNESIUM GLYCERINATE (400 MG) [Concomitant]
  3. LEVOTHYROXINE SODIUM. [Suspect]
     Active Substance: LEVOTHYROXINE SODIUM
     Route: 048
     Dates: start: 20160803, end: 20160901
  4. LIOTHYRONINE SODIUM. [Concomitant]
     Active Substance: LIOTHYRONINE SODIUM
  5. VITAMIN B3 [Concomitant]
     Active Substance: NIACIN
  6. ZINC 30 MG [Concomitant]

REACTIONS (8)
  - Hyperhidrosis [None]
  - Insomnia [None]
  - Blood pressure increased [None]
  - Feeling jittery [None]
  - Headache [None]
  - Tinnitus [None]
  - Tachycardia [None]
  - Muscle spasms [None]
